FAERS Safety Report 16281067 (Version 1)
Quarter: 2019Q2

REPORT INFORMATION
  Report Type: Spontaneous
  Country: US (occurrence: US)
  Receive Date: 20190402
  Receipt Date: 20190402
  Transmission Date: 20190711
  Serious: No
  Sender: FDA-Public Use
  Company Number: None

PATIENT
  Age: 72 Year
  Sex: Male

DRUGS (1)
  1. OCTREOTIDE PFS 100 MCG/ML [Suspect]
     Active Substance: OCTREOTIDE ACETATE
     Dates: start: 20190327

REACTIONS (4)
  - Dehydration [None]
  - Renal failure [None]
  - Nasopharyngitis [None]
  - Diarrhoea [None]

NARRATIVE: CASE EVENT DATE: 20190402
